FAERS Safety Report 8408356-X (Version None)
Quarter: 2012Q2

REPORT INFORMATION
  Report Type: 
  Country: None (occurrence: None)
  Receive Date: 20120604
  Receipt Date: 20120521
  Transmission Date: 20120825
  Serious: Yes (Hospitalization)
  Sender: FDA-Public Use
  Company Number: FR-CELGENEUS-056-21880-12013185

PATIENT
  Sex: Female
  Weight: 62 kg

DRUGS (19)
  1. ALLOPURINOL [Concomitant]
     Indication: PROPHYLAXIS
     Dosage: 100 MILLIGRAM
     Route: 048
  2. VALACYCLOVIR HYDROCHLORIDE [Concomitant]
     Indication: PROPHYLAXIS
     Dosage: 500 MILLIGRAM
     Route: 048
     Dates: start: 20111103
  3. CIPROFLOXACIN [Concomitant]
     Route: 065
     Dates: start: 20120116
  4. INNOHEP [Concomitant]
     Indication: PROPHYLAXIS
     Route: 048
     Dates: start: 20111103
  5. REVLIMID [Suspect]
     Indication: MULTIPLE MYELOMA
     Route: 048
     Dates: start: 20111115
  6. CLONAZEPAM [Concomitant]
     Indication: PROPHYLAXIS
     Route: 048
  7. EMEND [Concomitant]
     Route: 065
  8. BORTEZOMIB [Suspect]
     Indication: MULTIPLE MYELOMA
     Route: 065
     Dates: start: 20111115
  9. COLECTOL [Concomitant]
     Indication: PROPHYLAXIS
     Dosage: 200 MILLIGRAM
     Route: 048
  10. BACTRIM [Concomitant]
     Indication: PROPHYLAXIS
     Dosage: 800/160MG
     Route: 048
     Dates: start: 20111103
  11. CEFIXIME [Concomitant]
     Route: 065
     Dates: start: 20120116
  12. ZOFRAN [Concomitant]
     Route: 065
  13. DEXAMETHASONE [Suspect]
     Indication: MULTIPLE MYELOMA
     Route: 065
     Dates: start: 20111115
  14. MORPHINE SULFATE [Concomitant]
     Indication: PROPHYLAXIS
     Dosage: 2 MILLIGRAM
     Route: 048
  15. RABEPRAZOLE SODIUM [Concomitant]
     Indication: PROPHYLAXIS
     Dosage: 20 MILLIGRAM
     Route: 048
  16. INEGI [Concomitant]
     Indication: PROPHYLAXIS
     Dosage: 10 MICROGRAM
     Route: 048
  17. LEXOMIL [Concomitant]
     Indication: PROPHYLAXIS
     Route: 048
  18. ROCEPHIN [Concomitant]
     Dosage: 1 GRAM
     Route: 030
     Dates: start: 20120123
  19. MESNA [Concomitant]
     Indication: PROPHYLAXIS
     Route: 065

REACTIONS (1)
  - CYTOMEGALOVIRUS INFECTION [None]
